FAERS Safety Report 5045024-9 (Version None)
Quarter: 2006Q3

REPORT INFORMATION
  Report Type: 
  Country: None (occurrence: None)
  Receive Date: 20060705
  Receipt Date: 20060614
  Transmission Date: 20061208
  Serious: Yes (Death, Hospitalization)
  Sender: FDA-Public Use
  Company Number: US200602004309

PATIENT
  Age: 29 Year
  Sex: Male
  Weight: 117.9 kg

DRUGS (6)
  1. OLANZAPINE [Suspect]
     Dosage: 10 MG, ORAL
     Route: 048
     Dates: start: 19990616, end: 20040221
  2. OLANZAPINE [Suspect]
     Dosage: 10 MG, ORAL
     Route: 048
     Dates: start: 19981118
  3. RISPERIDONE [Concomitant]
  4. HALDOL [Concomitant]
  5. PROLIXIN [Concomitant]
  6. COGENTIN [Concomitant]

REACTIONS (4)
  - CARDIO-RESPIRATORY ARREST [None]
  - DIABETES MELLITUS [None]
  - THIRST [None]
  - WEIGHT INCREASED [None]
